FAERS Safety Report 17241699 (Version 4)
Quarter: 2020Q1

REPORT INFORMATION
  Report Type: Report from Study
  Country: US (occurrence: US)
  Receive Date: 20200107
  Receipt Date: 20200213
  Transmission Date: 20200409
  Serious: Yes (Life-Threatening, Hospitalization)
  Sender: FDA-Public Use
  Company Number: US-ROCHE-2514988

PATIENT
  Sex: Male
  Weight: 66.2 kg

DRUGS (7)
  1. OXYCODONE [Concomitant]
     Active Substance: OXYCODONE
     Indication: CANCER PAIN
     Dosage: 5-10 MG Q4H PRN
     Route: 065
     Dates: start: 20190802
  2. ATEZOLIZUMAB. [Suspect]
     Active Substance: ATEZOLIZUMAB
     Indication: NON-SMALL CELL LUNG CANCER
     Dosage: ON 13/DEC/2019, HE RECEIVED THE LAST DOSE OF ATEZOLIZUMAB PRIOR TO COLONIC PERFORATION AND ILEUS ONS
     Route: 042
     Dates: start: 20190916
  3. BEVACIZUMAB. [Suspect]
     Active Substance: BEVACIZUMAB
     Indication: NON-SMALL CELL LUNG CANCER
     Dosage: ON 13/DEC/2019, HE RECEIVED THE LAST DOSE OF BEVACIZUMAB PRIOR TO COLONIC PERFORATION AND ILEUS ONSE
     Route: 042
     Dates: start: 20190916, end: 20191213
  4. SENNA PLUS [DOCUSATE SODIUM;SENNOSIDE A+B] [Concomitant]
     Indication: CONSTIPATION
     Dosage: 100 MG BID PRN
     Route: 065
     Dates: start: 20190810
  5. PEMETREXED. [Suspect]
     Active Substance: PEMETREXED
     Indication: NON-SMALL CELL LUNG CANCER
     Dosage: ON 13/DEC/2019, HE RECEIVED THE LAST DOSE OF PEMETREXED PRIOR TO COLONIC PERFORATION AND ILEUS ONSET
     Route: 042
     Dates: start: 20190916
  6. CARBOPLATIN. [Suspect]
     Active Substance: CARBOPLATIN
     Indication: NON-SMALL CELL LUNG CANCER
     Dosage: ON 15/NOV/2019, HE RECEIVED THE LAST DOSE OF CARBOPLATIN PRIOR TO COLONIC PERFORATION AND ILEUS ONSE
     Route: 042
     Dates: start: 20190916
  7. POLYETHYLENE GLYCOL [Concomitant]
     Active Substance: POLYETHYLENE GLYCOLS
     Indication: CONSTIPATION
     Route: 065
     Dates: start: 20190811

REACTIONS (2)
  - Ileus [Recovered/Resolved with Sequelae]
  - Large intestine perforation [Recovered/Resolved with Sequelae]

NARRATIVE: CASE EVENT DATE: 20191224
